FAERS Safety Report 7063290-5 (Version None)
Quarter: 2010Q4

REPORT INFORMATION
  Report Type: 
  Country: None (occurrence: None)
  Receive Date: 20101026
  Receipt Date: 20100611
  Transmission Date: 20110411
  Serious: No
  Sender: FDA-Public Use
  Company Number: US-PFIZER INC-2010073561

PATIENT
  Sex: Female

DRUGS (6)
  1. LIPITOR [Suspect]
  2. INSULIN DETEMIR [Suspect]
  3. NOVOLOG [Suspect]
  4. ZETIA [Suspect]
  5. ZOCOR [Suspect]
  6. TRICOR [Suspect]

REACTIONS (1)
  - MUSCLE SPASMS [None]
